FAERS Safety Report 9778412 (Version 1)
Quarter: 2013Q4

REPORT INFORMATION
  Report Type: Other
  Country: BG (occurrence: BG)
  Receive Date: 20131223
  Receipt Date: 20131223
  Transmission Date: 20140711
  Serious: Yes (Other)
  Sender: FDA-Public Use
  Company Number: BG-US-EMD SERONO, INC.-7258109

PATIENT
  Age: 8 Year
  Sex: Male

DRUGS (1)
  1. SOMATROPIN [Suspect]
     Indication: GROWTH HORMONE DEFICIENCY

REACTIONS (3)
  - Adrenal insufficiency [Unknown]
  - Hypothyroidism [Unknown]
  - Secondary hypogonadism [Unknown]
